FAERS Safety Report 6973220-X (Version None)
Quarter: 2010Q3

REPORT INFORMATION
  Report Type: 
  Country: None (occurrence: None)
  Receive Date: 20100909
  Receipt Date: 20100902
  Transmission Date: 20110219
  Serious: Yes (Hospitalization, Other)
  Sender: FDA-Public Use
  Company Number: US-ELI_LILLY_AND_COMPANY-US201009001442

PATIENT
  Age: 64 Year
  Sex: Female

DRUGS (2)
  1. HUMULIN N [Suspect]
     Indication: DIABETES MELLITUS
     Dosage: UNK, AS NEEDED
  2. HUMULIN N [Suspect]
     Dosage: 2 U, AS NEEDED

REACTIONS (5)
  - ANKLE FRACTURE [None]
  - CEREBROVASCULAR ACCIDENT [None]
  - FALL [None]
  - FOOT FRACTURE [None]
  - SKIN ULCER [None]
